FAERS Safety Report 6964941-3 (Version None)
Quarter: 2010Q3

REPORT INFORMATION
  Report Type: 
  Country: None (occurrence: None)
  Receive Date: 20100903
  Receipt Date: 20100823
  Transmission Date: 20110219
  Serious: Yes (Hospitalization)
  Sender: FDA-Public Use
  Company Number: CA-ELI_LILLY_AND_COMPANY-CA201004006891

PATIENT
  Age: 91 Year
  Sex: Female

DRUGS (11)
  1. FORTEO [Suspect]
     Indication: OSTEOPOROSIS
     Dosage: 20 UG, DAILY (1/D)
     Route: 058
     Dates: start: 20091229
  2. FORTEO [Suspect]
     Dosage: 20 UG, DAILY (1/D)
     Route: 058
  3. PANTOLOC                           /01263201/ [Concomitant]
  4. DIOVOL [Concomitant]
  5. CALCIUM [Concomitant]
  6. ASCORBIC ACID [Concomitant]
  7. VITAMIN D [Concomitant]
  8. VITAMIN E [Concomitant]
  9. GLUCOSAMINE [Concomitant]
  10. TYLENOL /SCH/ [Concomitant]
     Dosage: 500 MG, AS NEEDED
  11. BEANO [Concomitant]

REACTIONS (6)
  - ABDOMINAL DISCOMFORT [None]
  - ASTHENIA [None]
  - DIZZINESS [None]
  - FLATULENCE [None]
  - GASTROINTESTINAL DISORDER [None]
  - HEADACHE [None]
